FAERS Safety Report 10939976 (Version 1)
Quarter: 2015Q1

REPORT INFORMATION
  Report Type: Spontaneous
  Country: US (occurrence: None)
  Receive Date: 20150212
  Receipt Date: 20150212
  Transmission Date: 20150721
  Serious: No
  Sender: FDA-Public Use
  Company Number: TPA2011A02933

PATIENT
  Age: 40 Year
  Sex: Male
  Weight: 92.99 kg

DRUGS (6)
  1. LISINOPRIL. [Concomitant]
     Active Substance: LISINOPRIL
  2. ULORIC [Suspect]
     Active Substance: FEBUXOSTAT
     Indication: GOUT
     Route: 048
     Dates: start: 20101215
  3. LUNESTA [Concomitant]
     Active Substance: ESZOPICLONE
  4. SIMVASTATIN. [Concomitant]
     Active Substance: SIMVASTATIN
  5. PROZAC (FLUOXETINE) [Concomitant]
  6. INDOMETHACIN (INDOMETACIN) [Concomitant]
     Active Substance: INDOMETHACIN

REACTIONS (1)
  - Rash [None]
